FAERS Safety Report 24633786 (Version 1)
Quarter: 2024Q4

REPORT INFORMATION
  Report Type: Report from Study
  Country: GB (occurrence: GB)
  Receive Date: 20241118
  Receipt Date: 20241118
  Transmission Date: 20250114
  Serious: Yes (Other)
  Sender: ABBVIE
  Company Number: GB-ABBVIE-6009236

PATIENT
  Sex: Male

DRUGS (1)
  1. RINVOQ [Suspect]
     Active Substance: UPADACITINIB
     Indication: Ankylosing spondylitis
     Dosage: 28 TABLET 4 X 7 TABLETS FORM STRENGTH: 15 MILLIGRAMS
     Route: 048

REACTIONS (1)
  - Neoplasm malignant [Not Recovered/Not Resolved]
